FAERS Safety Report 4960859-6 (Version None)
Quarter: 2006Q1

REPORT INFORMATION
  Report Type: 
  Country: None (occurrence: None)
  Receive Date: 20060331
  Receipt Date: 20060331
  Transmission Date: 20060701
  Serious: Yes (Hospitalization)
  Sender: FDA-Public Use
  Company Number: None

PATIENT
  Age: 57 Year
  Sex: Male
  Weight: 100 kg

DRUGS (2)
  1. OMNIPAQUE 140 [Suspect]
     Indication: COMPUTERISED TOMOGRAM
     Dosage: DON'T KNOW
     Dates: start: 20060306
  2. OMNIPAQUE 140 [Suspect]
     Indication: SPINAL MYELOGRAM
     Dosage: DON'T KNOW
     Dates: start: 20060306

REACTIONS (7)
  - AGITATION [None]
  - CONFUSIONAL STATE [None]
  - DYSSTASIA [None]
  - HEADACHE [None]
  - MENINGITIS CHEMICAL [None]
  - MENTAL STATUS CHANGES [None]
  - POST PROCEDURAL COMPLICATION [None]
